FAERS Safety Report 6240549-2 (Version None)
Quarter: 2009Q2

REPORT INFORMATION
  Report Type: 
  Country: None (occurrence: None)
  Receive Date: 20090623
  Receipt Date: 20080911
  Transmission Date: 20091009
  Serious: No
  Sender: FDA-Public Use
  Company Number: US-ASTRAZENECA-2008UW18826

PATIENT
  Age: 85 Year
  Sex: Male

DRUGS (9)
  1. PULMICORT RESPULES [Suspect]
     Indication: BRONCHITIS CHRONIC
     Dosage: 0.5 MG, DAILY
     Route: 055
     Dates: start: 20080901
  2. PLAVIX [Concomitant]
  3. METOPROLOL SUCCINATE [Concomitant]
  4. BENICAR [Concomitant]
  5. LIPITOR [Concomitant]
  6. HYDROCHLOROTHIAZIDE [Concomitant]
  7. ASPIRIN [Concomitant]
  8. FISH OIL [Concomitant]
  9. IPRATROPIUM BROMIDE [Concomitant]

REACTIONS (2)
  - OFF LABEL USE [None]
  - TEETH BRITTLE [None]
